FAERS Safety Report 5298033-9 (Version None)
Quarter: 2007Q2

REPORT INFORMATION
  Report Type: 
  Country: None (occurrence: None)
  Receive Date: 20070416
  Receipt Date: 20070403
  Transmission Date: 20071010
  Serious: Yes (Death, Life-Threatening, Hospitalization)
  Sender: FDA-Public Use
  Company Number: US-BRACCO-BDI-009287

PATIENT
  Sex: Female
  Weight: 61.36 kg

DRUGS (3)
  1. ISOVUE-128 [Suspect]
     Route: 042
     Dates: start: 20070301, end: 20070301
  2. ISOVUE-128 [Suspect]
     Indication: ABDOMINAL PAIN
     Route: 042
     Dates: start: 20070301, end: 20070301
  3. METFORMIN HCL [Concomitant]
     Route: 050

REACTIONS (7)
  - ACUTE RESPIRATORY DISTRESS SYNDROME [None]
  - ANAPHYLACTIC SHOCK [None]
  - DISSEMINATED INTRAVASCULAR COAGULATION [None]
  - HEPATITIS [None]
  - METABOLIC ACIDOSIS [None]
  - MULTI-ORGAN FAILURE [None]
  - PNEUMONIA [None]
